FAERS Safety Report 8720852 (Version 2)
Quarter: 2012Q4

REPORT INFORMATION
  Report Type: 
  Country: DE (occurrence: IT)
  Receive Date: 20120813
  Receipt Date: 20121109
  Transmission Date: 20130627
  Serious: Yes (Death)
  Sender: FDA-Public Use
  Company Number: IT-BRISTOL-MYERS SQUIBB COMPANY-16850190

PATIENT
  Age: 60 Year
  Sex: Female

DRUGS (11)
  1. METFORMIN HCL [Suspect]
     Indication: DIABETES MELLITUS
     Dosage: 850mg 3 in 1 day
     Route: 048
     Dates: start: 20100101, end: 20120727
  2. PANTORC [Concomitant]
  3. ENALAPRIL MALEATE [Concomitant]
     Indication: HYPERTENSION
  4. FUROSEMIDE [Concomitant]
     Indication: HEMIPLEGIA
  5. FUROSEMIDE [Concomitant]
     Indication: CEREBRAL INFARCTION
  6. BISOPROLOL [Concomitant]
     Indication: HYPERTENSION
  7. ACETYLSALICYLIC ACID [Concomitant]
     Indication: CEREBRAL INFARCTION
  8. ACETYLSALICYLIC ACID [Concomitant]
     Indication: HEMIPLEGIA
  9. AMLODIPINE BESYLATE [Concomitant]
     Indication: HYPERTENSION
  10. TIABENDAZOLE [Concomitant]
     Indication: HYPERTENSION
     Dosage: Statine
  11. LACTIC FERMENTS [Concomitant]

REACTIONS (2)
  - Lactic acidosis [Fatal]
  - Toxicity to various agents [Fatal]
